FAERS Safety Report 12205358 (Version 1)
Quarter: 2016Q1

REPORT INFORMATION
  Report Type: Report from Study
  Country: EG (occurrence: EG)
  Receive Date: 20160323
  Receipt Date: 20160323
  Transmission Date: 20160526
  Serious: Yes (Other)
  Sender: FDA-Public Use
  Company Number: EG-APOPHARMA-2015AP014739

PATIENT
  Age: 22 Year
  Sex: Female
  Weight: 46 kg

DRUGS (6)
  1. DEFERIPRONE [Suspect]
     Active Substance: DEFERIPRONE
     Indication: SICKLE CELL ANAEMIA
     Dosage: 15 MG/KG, TID
     Route: 048
     Dates: start: 20150530, end: 20150606
  2. DEFERIPRONE [Suspect]
     Active Substance: DEFERIPRONE
     Indication: IRON OVERLOAD
     Dosage: 20 MG/KG, TID
     Route: 048
     Dates: start: 20150607, end: 20150614
  3. DEFERIPRONE [Suspect]
     Active Substance: DEFERIPRONE
     Dosage: 25 MG/KG, TID
     Route: 048
     Dates: start: 20150615, end: 20151026
  4. PARACETAMOL [Concomitant]
     Active Substance: ACETAMINOPHEN
     Indication: PYREXIA
     Dosage: 1 DF, QD
     Route: 048
     Dates: start: 20151006, end: 20151006
  5. BRUFEN                             /00109201/ [Concomitant]
     Active Substance: IBUPROFEN
     Indication: HEADACHE
     Dosage: 400 MG, BID
     Route: 048
     Dates: start: 20150916, end: 20150916
  6. FOLIC ACID. [Concomitant]
     Active Substance: FOLIC ACID
     Indication: ERYTHROPOIESIS ABNORMAL
     Dosage: 0.5 MG, QD
     Route: 048
     Dates: start: 199403

REACTIONS (1)
  - Abortion spontaneous [Recovered/Resolved]

NARRATIVE: CASE EVENT DATE: 20151121
